FAERS Safety Report 6640546-9 (Version None)
Quarter: 2010Q1

REPORT INFORMATION
  Report Type: 
  Country: None (occurrence: None)
  Receive Date: 20100318
  Receipt Date: 20100312
  Transmission Date: 20100710
  Serious: Yes (Death, Other)
  Sender: FDA-Public Use
  Company Number: BR-PFIZER INC-2010032129

PATIENT
  Sex: Male

DRUGS (1)
  1. VIAGRA [Suspect]
     Dosage: 50 MG, UNK
     Route: 048

REACTIONS (3)
  - DEATH [None]
  - EPISTAXIS [None]
  - MOUTH HAEMORRHAGE [None]
